FAERS Safety Report 4597934-4 (Version None)
Quarter: 2005Q1

REPORT INFORMATION
  Report Type: 
  Country: None (occurrence: None)
  Receive Date: 20050301
  Receipt Date: 20050217
  Transmission Date: 20050727
  Serious: Yes (Other)
  Sender: FDA-Public Use
  Company Number: 2005-DE-00651GD

PATIENT
  Age: 47 Year
  Sex: Male

DRUGS (3)
  1. BUDESONIDE (BUDESONIDE) [Suspect]
     Indication: ASTHMA
     Dosage: 800 MCG 2 PUFFS  BID, IH
     Route: 055
  2. PREDNISONE [Suspect]
     Indication: ASTHMA
     Dosage: 20 MG - 40 MG ONCE DAILY
  3. FLUTICASONE PROPIONATE/SALMETEROL XINAFOATE (SERETIDE MITE) [Suspect]
     Indication: ASTHMA
     Dosage: FLUTICASONE/SALMETEROL 500/50

REACTIONS (2)
  - FORCED EXPIRATORY VOLUME INCREASED [None]
  - PHARMACEUTICAL PRODUCT COMPLAINT [None]
